FAERS Safety Report 20823906 (Version 1)
Quarter: 2022Q2

REPORT INFORMATION
  Report Type: Spontaneous
  Country: US (occurrence: US)
  Receive Date: 20220513
  Receipt Date: 20220513
  Transmission Date: 20220721
  Serious: Yes (Other)
  Sender: FDA-Public Use
  Company Number: US-BAYER-2022A066366

PATIENT
  Age: 5 Month
  Sex: Male

DRUGS (2)
  1. A AND D [Suspect]
     Active Substance: DIMETHICONE\PETROLATUM\ZINC OXIDE
     Indication: Dermatitis diaper
     Dosage: UNK
     Dates: start: 20220508, end: 20220508
  2. OMEPRAZOLE [Concomitant]
     Active Substance: OMEPRAZOLE
     Indication: Gastrooesophageal reflux disease
     Dosage: UNK
     Dates: start: 20220121

REACTIONS (1)
  - Urticaria [Recovering/Resolving]

NARRATIVE: CASE EVENT DATE: 20220508
